FAERS Safety Report 11718821 (Version 1)
Quarter: 2015Q4

REPORT INFORMATION
  Report Type: Spontaneous
  Country: IT (occurrence: IT)
  Receive Date: 20151110
  Receipt Date: 20151110
  Transmission Date: 20160304
  Serious: Yes (Death)
  Sender: FDA-Public Use
  Company Number: IT-PFIZER INC-2015367196

PATIENT
  Age: 74 Year
  Sex: Female
  Weight: 51 kg

DRUGS (7)
  1. METFORMIN [Concomitant]
     Active Substance: METFORMIN HYDROCHLORIDE
     Indication: TYPE 2 DIABETES MELLITUS
     Dosage: 500 MG, UNK
     Route: 048
  2. GIANT [Concomitant]
     Active Substance: AMLODIPINE BESYLATE\OLMESARTAN MEDOXOMIL
     Indication: HYPERTENSION
     Route: 048
  3. NEBILOX [Interacting]
     Active Substance: NEBIVOLOL HYDROCHLORIDE
     Indication: HYPERTENSION
     Dosage: UNK, DAILY
     Route: 048
  4. TORVAST [Concomitant]
     Active Substance: ATORVASTATIN
     Dosage: UNK
     Route: 048
  5. SUTENT [Interacting]
     Active Substance: SUNITINIB MALATE
     Dosage: 50 MG, DAILY, 2 WEEKS ON/1 WEEK OFF
     Dates: start: 20150909, end: 20151015
  6. SUTENT [Suspect]
     Active Substance: SUNITINIB MALATE
     Indication: RENAL CANCER METASTATIC
     Dosage: 50 MG, DAILY, 4 WEEKS ON/2 WEEKS OFF
     Route: 048
     Dates: start: 20150727
  7. DEPALGOS [Interacting]
     Active Substance: ACETAMINOPHEN\OXYCODONE HYDROCHLORIDE
     Indication: PAIN
     Dosage: UNK, DAILY
     Route: 048
     Dates: start: 20151010, end: 20151015

REACTIONS (15)
  - Blood creatine phosphokinase increased [Recovered/Resolved]
  - Sudden death [Fatal]
  - Joint swelling [Unknown]
  - Stomatitis [Recovering/Resolving]
  - Proteinuria [Unknown]
  - Weight increased [Unknown]
  - Groin pain [Unknown]
  - Blood pressure increased [Unknown]
  - Blood creatinine increased [Unknown]
  - Musculoskeletal pain [Unknown]
  - Drug interaction [Fatal]
  - Yellow skin [Recovered/Resolved]
  - Rash [Recovered/Resolved]
  - Vomiting [Unknown]
  - Alanine aminotransferase increased [Unknown]

NARRATIVE: CASE EVENT DATE: 20150811
